FAERS Safety Report 12876179 (Version 1)
Quarter: 2016Q4

REPORT INFORMATION
  Report Type: Spontaneous
  Country: IL (occurrence: IL)
  Receive Date: 20161024
  Receipt Date: 20161024
  Transmission Date: 20170207
  Serious: Yes (Death, Hospitalization)
  Sender: FDA-Public Use
  Company Number: IL-UNITED THERAPEUTICS-UNT-2016-016167

PATIENT
  Age: 27 Year
  Sex: Male

DRUGS (1)
  1. REMODULIN [Suspect]
     Active Substance: TREPROSTINIL
     Indication: PULMONARY ARTERIAL HYPERTENSION
     Dosage: 0.050 ?G/KG, UNK
     Route: 058
     Dates: start: 2014

REACTIONS (2)
  - Multiple organ dysfunction syndrome [Fatal]
  - General physical health deterioration [Fatal]

NARRATIVE: CASE EVENT DATE: 201610
